FAERS Safety Report 4879929-6 (Version None)
Quarter: 2006Q1

REPORT INFORMATION
  Report Type: 
  Country: None (occurrence: None)
  Receive Date: 20060113
  Receipt Date: 20051005
  Transmission Date: 20060701
  Serious: Yes (Hospitalization)
  Sender: FDA-Public Use
  Company Number: US-MERCK-0510USA04677

PATIENT
  Age: 82 Year
  Sex: Female
  Weight: 70 kg

DRUGS (4)
  1. VIOXX [Suspect]
     Indication: FIBROMYALGIA
     Route: 048
     Dates: start: 19990101, end: 20000101
  2. VIOXX [Suspect]
     Indication: SURGERY
     Route: 048
     Dates: start: 19990101, end: 20000101
  3. LEVOXYL [Concomitant]
     Route: 065
  4. MENEST [Concomitant]
     Route: 065

REACTIONS (10)
  - ANGINA PECTORIS [None]
  - ANXIETY [None]
  - CARDIOVASCULAR DISORDER [None]
  - DEPRESSION [None]
  - DYSPNOEA [None]
  - HEART RATE IRREGULAR [None]
  - PAIN [None]
  - PALPITATIONS [None]
  - SPINAL DISORDER [None]
  - VENTRICULAR DYSFUNCTION [None]
